FAERS Safety Report 7281672-3 (Version None)
Quarter: 2010Q4

REPORT INFORMATION
  Report Type: 
  Country: None (occurrence: None)
  Receive Date: 20101221
  Receipt Date: 20100326
  Transmission Date: 20110411
  Serious: Yes (Hospitalization)
  Sender: FDA-Public Use
  Company Number: WAES 1003USA04347

PATIENT
  Age: 78 Year
  Sex: Male

DRUGS (3)
  1. JANUVIA [Suspect]
     Dosage: PO
     Route: 048
     Dates: end: 20100319
  2. FLOMAX [Concomitant]
  3. LISINOPRIL [Concomitant]

REACTIONS (1)
  - ANGIOEDEMA [None]
